FAERS Safety Report 22218045 (Version 2)
Quarter: 2023Q2

REPORT INFORMATION
  Report Type: Spontaneous
  Country: GR (occurrence: GR)
  Receive Date: 20230417
  Receipt Date: 20230524
  Transmission Date: 20230721
  Serious: No
  Sender: FDA-Public Use
  Company Number: GR-PFIZER INC-PV202300061536

PATIENT
  Age: 15 Year
  Sex: Male

DRUGS (1)
  1. GENOTROPIN [Suspect]
     Active Substance: SOMATROPIN
     Indication: Dwarfism
     Dosage: 9 MG, WEEKLY (SUNDAY DAY OFF)
     Route: 058
     Dates: start: 20221017

REACTIONS (1)
  - Device mechanical issue [Unknown]
